FAERS Safety Report 18990902 (Version 1)
Quarter: 2021Q1

REPORT INFORMATION
  Report Type: Report from Study
  Country: JP (occurrence: JP)
  Receive Date: 20210310
  Receipt Date: 20210310
  Transmission Date: 20210420
  Serious: Yes (Hospitalization)
  Sender: FDA-Public Use
  Company Number: JP-SA-2021SA075633

PATIENT
  Age: 65 Year
  Sex: Male
  Weight: 81.5 kg

DRUGS (16)
  1. KETOPROFEN. [Suspect]
     Active Substance: KETOPROFEN
     Indication: RHEUMATOID ARTHRITIS
     Dosage: BID
     Route: 061
     Dates: start: 20201020
  2. ISCOTIN [METHANIAZIDE SODIUM] [Suspect]
     Active Substance: METHANIAZIDE SODIUM
     Indication: TUBERCULOSIS
     Dosage: 3 DF, QD AFTER BREAKFAST
     Route: 048
     Dates: start: 20200623
  3. PITAVASTATIN CA [Suspect]
     Active Substance: PITAVASTATIN CALCIUM
     Indication: DYSLIPIDAEMIA
     Dosage: 1 DF, QD AFTER BREAKFAST
     Route: 048
  4. URSODEOXYCHOLIC ACID [Suspect]
     Active Substance: URSODIOL
     Indication: GAMMA-GLUTAMYLTRANSFERASE INCREASED
     Dosage: 6 DF, TID AFTER BREAKFAST, LUNCH, AND DINNER
     Route: 048
     Dates: start: 20200707
  5. GOOFICE [Suspect]
     Active Substance: ELOBIXIBAT
     Indication: CONSTIPATION
     Dosage: 2 DF, QD AT BEDTIME
     Route: 048
     Dates: start: 20201104
  6. PREDNISOLONE. [Suspect]
     Active Substance: PREDNISOLONE
     Indication: RHEUMATOID ARTHRITIS
     Dosage: 1 DF, QD AFTER BREAKFAST
     Route: 048
     Dates: start: 20170207
  7. CARERAM [Suspect]
     Active Substance: IGURATIMOD
     Indication: RHEUMATOID ARTHRITIS
     Dosage: 2 DF, BID (AFTER BREAKFAST AND DINNER)
     Route: 048
  8. AMLODIPINE BESILATE/TELMISARTAN [Suspect]
     Active Substance: AMLODIPINE\TELMISARTAN
     Indication: HYPERTENSION
     Dosage: 1 DF, QD AFTER BREAKFAST
     Route: 048
  9. METFORMIN HYDROCHLORIDE. [Suspect]
     Active Substance: METFORMIN HYDROCHLORIDE
     Indication: DIABETES MELLITUS
     Dosage: 2 DF, BID AFTER BREAKFAST AND DINNER
     Route: 048
  10. SARILUMAB [Suspect]
     Active Substance: SARILUMAB
     Indication: RHEUMATOID ARTHRITIS
     Dosage: 200 MG, QOW
     Route: 058
     Dates: start: 20201006, end: 20201117
  11. PREDNISOLONE. [Suspect]
     Active Substance: PREDNISOLONE
     Indication: RHEUMATOID ARTHRITIS
     Dosage: 3 DF, QD AFTER BREAKFAST
     Route: 048
     Dates: start: 20150728
  12. MAGNESIUM OXIDE. [Suspect]
     Active Substance: MAGNESIUM OXIDE
     Indication: CONSTIPATION
     Dosage: 2 DF, BID AFTER BREAKFAST AND DINNER
     Route: 048
  13. LOXOPROFEN NA [Suspect]
     Active Substance: LOXOPROFEN SODIUM
     Indication: RHEUMATOID ARTHRITIS
     Dosage: 3 DF, TID AFTER BREAKFAST, LUNCH, AND DINNER
     Route: 048
  14. RIFAMPICIN [Suspect]
     Active Substance: RIFAMPIN
     Indication: TUBERCULOSIS
     Dosage: 3 DF, QD AFTER BREAKFAST
     Route: 048
     Dates: start: 20200623
  15. ACETYLSALICYLIC ACID [Suspect]
     Active Substance: ASPIRIN
     Indication: ANGINA PECTORIS
     Dosage: 1 DF, QD AFTER BREAKFAST
     Route: 048
  16. ESOMEPRAZOLE MAGNESIUM. [Suspect]
     Active Substance: ESOMEPRAZOLE MAGNESIUM
     Indication: GASTROOESOPHAGEAL REFLUX DISEASE
     Dosage: 1 DF, QD AFTER DINNER
     Route: 048

REACTIONS (1)
  - Joint tuberculosis [Recovering/Resolving]

NARRATIVE: CASE EVENT DATE: 20201110
